FAERS Safety Report 10159761 (Version 1)
Quarter: 2014Q2

REPORT INFORMATION
  Report Type: Spontaneous
  Country: US (occurrence: US)
  Receive Date: 20140508
  Receipt Date: 20140508
  Transmission Date: 20141212
  Serious: No
  Sender: FDA-Public Use
  Company Number: US-GLAXOSMITHKLINE-A1025979A

PATIENT
  Age: 69 Year
  Sex: Female

DRUGS (9)
  1. TYKERB [Suspect]
     Indication: BREAST CANCER
     Dosage: 1250MG PER DAY
     Route: 048
     Dates: start: 201205
  2. BUSPIRONE [Concomitant]
  3. CLONAZEPAM [Concomitant]
  4. XANAX [Concomitant]
  5. NEXIUM [Concomitant]
  6. OXYCODONE [Concomitant]
  7. L-THYROXINE [Concomitant]
  8. OXYCONTIN [Concomitant]
  9. NAVELBINE [Concomitant]

REACTIONS (2)
  - Diarrhoea [Recovered/Resolved]
  - Dyspnoea [Recovering/Resolving]
